FAERS Safety Report 25417678 (Version 2)
Quarter: 2025Q2

REPORT INFORMATION
  Report Type: Spontaneous
  Country: CN (occurrence: CN)
  Receive Date: 20250610
  Receipt Date: 20250613
  Transmission Date: 20250716
  Serious: Yes (Hospitalization, Other)
  Sender: MERCK SHARP & DOHME LLC
  Company Number: CN-009507513-2292100

PATIENT
  Age: 75 Year
  Sex: Male
  Weight: 70 kg

DRUGS (1)
  1. KEYTRUDA [Suspect]
     Active Substance: PEMBROLIZUMAB
     Indication: Nasopharyngeal cancer
     Dosage: 100 MG, EVERY 21 DAYS
     Route: 041
     Dates: start: 20230901, end: 20250131

REACTIONS (8)
  - Immune-mediated lung disease [Recovering/Resolving]
  - Pulmonary oedema [Unknown]
  - Pericardial effusion [Unknown]
  - Interstitial lung disease [Unknown]
  - Oedema peripheral [Unknown]
  - Swelling face [Unknown]
  - Underdose [Unknown]
  - Lung opacity [Unknown]

NARRATIVE: CASE EVENT DATE: 20230901
